FAERS Safety Report 9991846 (Version 1)
Quarter: 2014Q1

REPORT INFORMATION
  Report Type: Spontaneous
  Country: US (occurrence: US)
  Receive Date: 20140310
  Receipt Date: 20140310
  Transmission Date: 20141002
  Serious: Yes (Hospitalization, Other)
  Sender: FDA-Public Use
  Company Number: US-GLAXOSMITHKLINE-B0975274A

PATIENT
  Age: 56 Year
  Sex: Female

DRUGS (1)
  1. ORLISTAT [Suspect]
     Indication: OBESITY
     Route: 048

REACTIONS (3)
  - Nephropathy [Not Recovered/Not Resolved]
  - Hyperoxaluria [Unknown]
  - Anaemia [Unknown]
